FAERS Safety Report 9193143 (Version 1)
Quarter: 2013Q1

REPORT INFORMATION
  Report Type: Not Available
  Country: IT (occurrence: IT)
  Receive Date: 20130327
  Receipt Date: 20130327
  Transmission Date: 20140127
  Serious: Yes (Other)
  Sender: FDA-Public Use
  Company Number: IT-PURDUE-USA-2013-0100379

PATIENT
  Age: 73 Year
  Sex: Female

DRUGS (5)
  1. TRAMADOL (SIMILAR TO NDA 21-745) [Suspect]
     Indication: PRODUCT USED FOR UNKNOWN INDICATION
     Dosage: UNK UNK, SEE TEXT
     Route: 048
     Dates: start: 20121205, end: 20121206
  2. ALPRAZOLAM [Concomitant]
  3. PANTOPRAZOLE [Concomitant]
  4. LOSARTAN [Concomitant]
  5. TAUROURSODESOXYCHOLIC ACID [Concomitant]

REACTIONS (3)
  - Hallucination [Not Recovered/Not Resolved]
  - Dyspnoea [Not Recovered/Not Resolved]
  - Vomiting [Recovering/Resolving]
